FAERS Safety Report 5096272-3 (Version None)
Quarter: 2006Q3

REPORT INFORMATION
  Report Type: 
  Country: None (occurrence: None)
  Receive Date: 20060905
  Receipt Date: 20060629
  Transmission Date: 20061208
  Serious: Yes (Death, Hospitalization)
  Sender: FDA-Public Use
  Company Number: CA-BAYER-200612792GDS

PATIENT
  Age: 51 Year
  Sex: Male
  Weight: 60 kg

DRUGS (5)
  1. SORAFENIB [Suspect]
     Indication: RENAL CELL CARCINOMA STAGE UNSPECIFIED
     Dosage: TOTAL DAILY DOSE: 800 MG
     Route: 048
     Dates: start: 20060608
  2. FRAGMIN [Concomitant]
     Indication: DEEP VEIN THROMBOSIS
     Route: 058
  3. HYDROMORPHONE HCL [Concomitant]
     Indication: PAIN
     Route: 048
     Dates: start: 20060605
  4. HYDROMORPHONE HCL [Concomitant]
     Route: 048
     Dates: start: 20060605
  5. LACTULOSE [Concomitant]
     Indication: CONSTIPATION
     Route: 048
     Dates: start: 20060605

REACTIONS (9)
  - ASTHENIA [None]
  - BACK PAIN [None]
  - DEHYDRATION [None]
  - GENERAL PHYSICAL HEALTH DETERIORATION [None]
  - MUCOSAL INFLAMMATION [None]
  - NAUSEA [None]
  - ORAL INTAKE REDUCED [None]
  - PITTING OEDEMA [None]
  - VERTIGO [None]
